FAERS Safety Report 5692983-7 (Version None)
Quarter: 2008Q2

REPORT INFORMATION
  Report Type: 
  Country: None (occurrence: None)
  Receive Date: 20080403
  Receipt Date: 20080328
  Transmission Date: 20081010
  Serious: Yes (Hospitalization)
  Sender: FDA-Public Use
  Company Number: NL-TEVA-169422ISR

PATIENT
  Sex: Male

DRUGS (2)
  1. GLIMEPIRIDE [Suspect]
     Route: 048
  2. GLIMEPIRIDE [Suspect]
     Route: 048

REACTIONS (1)
  - ANAPHYLACTIC REACTION [None]
